FAERS Safety Report 5752889-1 (Version None)
Quarter: 2008Q2

REPORT INFORMATION
  Report Type: 
  Country: None (occurrence: None)
  Receive Date: 20080529
  Receipt Date: 20080526
  Transmission Date: 20081010
  Serious: Yes (Hospitalization, Other)
  Sender: FDA-Public Use
  Company Number: JP-BOEHRINGER INGELHEIM GMBH, GERMANY-2008-BP-07117NB

PATIENT
  Sex: Female
  Weight: 59 kg

DRUGS (4)
  1. MICARDIS [Suspect]
     Indication: HYPERTENSION
     Route: 048
     Dates: start: 20070213, end: 20080308
  2. CLARITIN [Concomitant]
     Route: 048
     Dates: start: 20070227, end: 20080308
  3. WARFARIN SODIUM [Concomitant]
     Route: 048
     Dates: start: 20070410, end: 20080308
  4. AMLODIN [Concomitant]
     Indication: HYPERTENSION
     Route: 048
     Dates: start: 20070131, end: 20080308

REACTIONS (1)
  - GALLBLADDER CANCER [None]
